FAERS Safety Report 13618386 (Version 1)
Quarter: 2017Q2

REPORT INFORMATION
  Report Type: Spontaneous
  Country: US (occurrence: US)
  Receive Date: 20170606
  Receipt Date: 20170606
  Transmission Date: 20170830
  Serious: No
  Sender: FDA-Public Use
  Company Number: US-JNJFOC-20170500461

PATIENT
  Sex: Female

DRUGS (2)
  1. IMODIUM A-D [Suspect]
     Active Substance: LOPERAMIDE HYDROCHLORIDE
     Route: 048
  2. IMODIUM A-D [Suspect]
     Active Substance: LOPERAMIDE HYDROCHLORIDE
     Indication: DIARRHOEA
     Dosage: TWO CAPLETS AFTER FIRST LOOSE STOOL AND ONE CAPLET AFTER SUBSEQUENT LOOSE STOOL
     Route: 048
     Dates: start: 201704

REACTIONS (2)
  - Incorrect product storage [Unknown]
  - Product use complaint [Unknown]

NARRATIVE: CASE EVENT DATE: 201704
